FAERS Safety Report 7331183-1 (Version None)
Quarter: 2011Q1

REPORT INFORMATION
  Report Type: 
  Country: None (occurrence: None)
  Receive Date: 20110228
  Receipt Date: 20110228
  Transmission Date: 20110831
  Serious: Yes (Disabling)
  Sender: FDA-Public Use
  Company Number: None

PATIENT
  Age: 45 Year
  Sex: Male
  Weight: 82.5547 kg

DRUGS (1)
  1. DEFINITY [Suspect]
     Indication: ELECTROCARDIOGRAM
     Dosage: 2ML ONCE IV BOLUS
     Route: 040
     Dates: start: 20101214, end: 20101214

REACTIONS (3)
  - THROAT TIGHTNESS [None]
  - FLUSHING [None]
  - DYSPNOEA [None]
